FAERS Safety Report 11317230 (Version 3)
Quarter: 2015Q3

REPORT INFORMATION
  Report Type: Report from Study
  Country: US (occurrence: US)
  Receive Date: 20150728
  Receipt Date: 20150904
  Transmission Date: 20151125
  Serious: No
  Sender: FDA-Public Use
  Company Number: US-AMGEN-USASP2015074357

PATIENT
  Age: 45 Year
  Sex: Female

DRUGS (1)
  1. ENBREL [Suspect]
     Active Substance: ETANERCEPT
     Indication: PSORIATIC ARTHROPATHY
     Dosage: 50 MG, QWK
     Route: 065
     Dates: start: 20150715, end: 201508

REACTIONS (13)
  - Pruritus [Unknown]
  - Drug hypersensitivity [Unknown]
  - Injection site urticaria [Unknown]
  - Throat irritation [Unknown]
  - Urticaria [Unknown]
  - Injection site pain [Unknown]
  - Rash pruritic [Unknown]
  - Injection site reaction [Unknown]
  - Swelling [Unknown]
  - Injection site rash [Unknown]
  - Fatigue [Unknown]
  - Rash erythematous [Unknown]
  - Injection site pruritus [Unknown]

NARRATIVE: CASE EVENT DATE: 201507
